FAERS Safety Report 18787202 (Version 3)
Quarter: 2021Q4

REPORT INFORMATION
  Report Type: Report from Study
  Country: US (occurrence: None)
  Receive Date: 20210126
  Receipt Date: 20211207
  Transmission Date: 20220303
  Serious: Yes (Hospitalization)
  Sender: FDA-Public Use
  Company Number: US-ROCHE-2757469

PATIENT
  Age: 43 Year
  Sex: Male
  Weight: 77.634 kg

DRUGS (12)
  1. PIRFENIDONE [Suspect]
     Active Substance: PIRFENIDONE
     Indication: Restrictive allograft syndrome
     Route: 048
     Dates: start: 20190808
  2. PIPERACILLIN AND TAZOBACTAM [Concomitant]
     Active Substance: PIPERACILLIN SODIUM\TAZOBACTAM SODIUM
     Dosage: IVPB 3.375 GRAMS IN DEXTROSE ISO-OSM 50 ML IVPB ADMINISTERED ONCE OVER 4 HOURS
  3. VANCOMYCIN [Concomitant]
     Active Substance: VANCOMYCIN
     Dosage: 0.9 PERCENT SODIUM CHLORIDE 1.25G/250ML IVPB 1250 MG ADMINISTERED OVER 90 MINUTES ONCE YESTERDAY 1/2
  4. TACROLIMUS [Concomitant]
     Active Substance: TACROLIMUS
  5. PREDNISONE [Concomitant]
     Active Substance: PREDNISONE
  6. ALBUTEROL SULFATE [Concomitant]
     Active Substance: ALBUTEROL SULFATE
     Dosage: 90MCG/ACTUATION 2 PUFFS INHALATION
  7. ATORVASTATIN [Concomitant]
     Active Substance: ATORVASTATIN
  8. METFORMIN [Concomitant]
     Active Substance: METFORMIN HYDROCHLORIDE
  9. OMEPRAZOLE [Concomitant]
     Active Substance: OMEPRAZOLE
  10. MYCOPHENOLATE MOFETIL [Concomitant]
     Active Substance: MYCOPHENOLATE MOFETIL
  11. SERTRALINE [Concomitant]
     Active Substance: SERTRALINE HYDROCHLORIDE
  12. GABAPENTIN [Concomitant]
     Active Substance: GABAPENTIN
     Dosage: 300 MG ADDITIONALLY ONCE DAILY.

REACTIONS (2)
  - Dyspnoea [Recovered/Resolved]
  - Respiratory failure [Recovered/Resolved]

NARRATIVE: CASE EVENT DATE: 20210120
